FAERS Safety Report 12195517 (Version 2)
Quarter: 2016Q2

REPORT INFORMATION
  Report Type: Spontaneous
  Country: CZ (occurrence: CZ)
  Receive Date: 20160321
  Receipt Date: 20160414
  Transmission Date: 20160815
  Serious: Yes (Life-Threatening, Hospitalization, Other)
  Sender: FDA-Public Use
  Company Number: CZ-PFIZER INC-2016165821

PATIENT
  Age: 74 Year
  Sex: Female
  Weight: 63 kg

DRUGS (19)
  1. FUROSEMID [Concomitant]
     Active Substance: FUROSEMIDE
  2. RILMENIDINE [Concomitant]
     Active Substance: RILMENIDINE
  3. PARALEN [Concomitant]
     Active Substance: ACETAMINOPHEN
  4. NOVALGIN [Suspect]
     Active Substance: METAMIZOLE SODIUM
     Indication: POSTOPERATIVE ANALGESIA
     Dosage: 1 G, IN INFUSION
     Route: 042
     Dates: start: 20160218, end: 20160218
  5. SERETIDE [Concomitant]
     Active Substance: FLUTICASONE PROPIONATE\SALMETEROL XINAFOATE
  6. RAMIL H [Concomitant]
  7. NORADRENALIN /00127502/ [Concomitant]
  8. BERODUAL [Concomitant]
     Active Substance: FENOTEROL HYDROBROMIDE\IPRATROPIUM BROMIDE
  9. DIPIDOLOR [Concomitant]
     Active Substance: PIRITRAMIDE
  10. GODASAL [Concomitant]
     Active Substance: ASPIRIN\GLYCINE
  11. NITRO POHL INFUSE [Concomitant]
  12. SYNTOPHYLLIN /00003701/ [Concomitant]
  13. DICLOFENAC [Concomitant]
     Active Substance: DICLOFENAC
  14. DEGAN [Concomitant]
     Active Substance: METOCLOPRAMIDE HYDROCHLORIDE
  15. HUMULIN NOS [Concomitant]
     Active Substance: INSULIN HUMAN
  16. VEROGALID [Concomitant]
  17. DETRALEX [Concomitant]
     Active Substance: DIOSMIN\HESPERIDIN
  18. SOLU-MEDROL [Suspect]
     Active Substance: METHYLPREDNISOLONE SODIUM SUCCINATE
     Indication: ANAPHYLAXIS PROPHYLAXIS
     Dosage: 40 MG
     Route: 042
     Dates: start: 20160218, end: 20160218
  19. CONTROLOC /01263204/ [Concomitant]

REACTIONS (1)
  - Bronchospasm [Recovered/Resolved]

NARRATIVE: CASE EVENT DATE: 20160218
